FAERS Safety Report 20006626 (Version 1)
Quarter: 2021Q4

REPORT INFORMATION
  Report Type: Spontaneous
  Country: FR (occurrence: FR)
  Receive Date: 20211028
  Receipt Date: 20211028
  Transmission Date: 20220303
  Serious: Yes (Hospitalization)
  Sender: FDA-Public Use
  Company Number: None

PATIENT
  Age: 13 Year
  Sex: Female

DRUGS (3)
  1. IBUPROFEN [Suspect]
     Active Substance: IBUPROFEN
     Indication: Suicide attempt
     Dosage: 10 DOSAGE FORM, TOTAL
     Route: 048
     Dates: start: 20210617, end: 20210617
  2. DAFALGAN [Suspect]
     Active Substance: ACETAMINOPHEN
     Indication: Suicide attempt
     Dosage: 10 TABLETS
     Route: 048
     Dates: start: 20210617, end: 20210617
  3. SKENAN [Suspect]
     Active Substance: MORPHINE SULFATE
     Indication: Suicide attempt
     Dosage: 60 MILLIGRAM, TOTAL, 2 TABLETS OF 30 MG
     Route: 048
     Dates: start: 20210617, end: 20210617

REACTIONS (4)
  - Gait disturbance [Recovered/Resolved]
  - Dysarthria [Recovered/Resolved]
  - Abdominal pain [Recovered/Resolved]
  - Toxicity to various agents [Recovered/Resolved]

NARRATIVE: CASE EVENT DATE: 20210617
